FAERS Safety Report 18970733 (Version 3)
Quarter: 2021Q1

REPORT INFORMATION
  Report Type: Spontaneous
  Country: US (occurrence: US)
  Receive Date: 20210304
  Receipt Date: 20210324
  Transmission Date: 20210420
  Serious: Yes (Other)
  Sender: FDA-Public Use
  Company Number: US-ORGANON-2102USA007476

PATIENT
  Age: 18 Year
  Sex: Female
  Weight: 53.97 kg

DRUGS (1)
  1. NEXPLANON [Suspect]
     Active Substance: ETONOGESTREL
     Dosage: 1 ROD, EVERY 3 YEARS
     Route: 059
     Dates: end: 202012

REACTIONS (6)
  - Limb discomfort [Unknown]
  - Device breakage [Recovered/Resolved]
  - Loss of consciousness [Unknown]
  - Complication associated with device [Recovered/Resolved]
  - Complication of device removal [Recovered/Resolved]
  - Incorrect product administration duration [Unknown]

NARRATIVE: CASE EVENT DATE: 201906
